FAERS Safety Report 10497104 (Version 2)
Quarter: 2014Q4

REPORT INFORMATION
  Report Type: Spontaneous
  Country: US (occurrence: US)
  Receive Date: 20141006
  Receipt Date: 20141203
  Transmission Date: 20150528
  Serious: Yes (Other)
  Sender: FDA-Public Use
  Company Number: US-CELGENE-USA-2014094201

PATIENT
  Sex: Male
  Weight: 85.3 kg

DRUGS (21)
  1. EXCEDRIN MIGRAINE [Concomitant]
     Active Substance: ACETAMINOPHEN\ASPIRIN\CAFFEINE
     Route: 065
  2. LISINOPRIL. [Concomitant]
     Active Substance: LISINOPRIL
     Route: 065
  3. MAGNESIUM [Concomitant]
     Active Substance: MAGNESIUM
     Route: 065
  4. RESTASIS [Concomitant]
     Active Substance: CYCLOSPORINE
     Route: 065
  5. REVLIMID [Suspect]
     Active Substance: LENALIDOMIDE
     Indication: PLASMA CELL MYELOMA
     Dosage: 10 MILLIGRAM
     Route: 048
     Dates: start: 201309
  6. NEXIUM [Concomitant]
     Active Substance: ESOMEPRAZOLE MAGNESIUM
     Route: 065
  7. VALTREX [Concomitant]
     Active Substance: VALACYCLOVIR HYDROCHLORIDE
     Route: 065
  8. VALACYCLOVIR [Concomitant]
     Active Substance: VALACYCLOVIR HYDROCHLORIDE
     Route: 065
  9. ATIVAN [Concomitant]
     Active Substance: LORAZEPAM
     Route: 065
  10. FONDAPARINUX SODIUM. [Concomitant]
     Active Substance: FONDAPARINUX SODIUM
     Route: 065
  11. PHOSPHATE [Concomitant]
     Active Substance: UNSPECIFIED INGREDIENT
     Route: 065
  12. AXIRON [Concomitant]
     Active Substance: TESTOSTERONE
     Dosage: 30MG/1
     Route: 065
  13. DEXAMETHASONE. [Concomitant]
     Active Substance: DEXAMETHASONE
     Route: 065
  14. MORPHINE SULFATE. [Concomitant]
     Active Substance: MORPHINE SULFATE
     Route: 065
  15. FENTANYL. [Concomitant]
     Active Substance: FENTANYL
     Route: 065
  16. VENLAFAXINE EXTENDED RELEASE [Concomitant]
     Route: 065
  17. BUTALBITAL-ACETAMINOPHEN [Concomitant]
     Route: 065
  18. OMEPRAZOLE. [Concomitant]
     Active Substance: OMEPRAZOLE
     Route: 065
  19. ASPIRIN EC [Concomitant]
     Active Substance: ASPIRIN
     Route: 065
  20. MELATONIN [Concomitant]
     Active Substance: MELATONIN
     Route: 065
  21. OXYCODONE HCL [Concomitant]
     Active Substance: OXYCODONE HYDROCHLORIDE
     Route: 065

REACTIONS (2)
  - Malaise [Unknown]
  - Haemorrhage [Unknown]
